FAERS Safety Report 10313696 (Version 5)
Quarter: 2015Q1

REPORT INFORMATION
  Report Type: Spontaneous
  Country: US (occurrence: None)
  Receive Date: 20140716
  Receipt Date: 20150326
  Transmission Date: 20150720
  Serious: Yes (Life-Threatening, Hospitalization)
  Sender: FDA-Public Use
  Company Number: 1713747-2014-99998

PATIENT
  Age: 64 Year
  Sex: Female
  Weight: 121.5 kg

DRUGS (6)
  1. 2008K HEMODIALYSIS SYSTEM [Concomitant]
  2. 0.9% SODIUM CHLORIDE INJECTION [Suspect]
     Active Substance: SODIUM CHLORIDE
     Indication: CHRONIC KIDNEY DISEASE
     Dosage: HEMODIALYSIS
     Dates: start: 20140623
  3. COMBI SET [Concomitant]
  4. GRANUFLO [Concomitant]
     Active Substance: ACETIC ACID\SODIUM ACETATE
  5. FRESENIUS DIALYZER [Concomitant]
  6. NATURALYTE [Concomitant]
     Active Substance: ACETIC ACID\SODIUM ACETATE

REACTIONS (3)
  - Cardio-respiratory arrest [None]
  - Dyspnoea [None]
  - Haemodialysis [None]

NARRATIVE: CASE EVENT DATE: 20140626
